FAERS Safety Report 6883340-6 (Version None)
Quarter: 2010Q3

REPORT INFORMATION
  Report Type: 
  Country: None (occurrence: None)
  Receive Date: 20100727
  Receipt Date: 20080225
  Transmission Date: 20110219
  Serious: No
  Sender: FDA-Public Use
  Company Number: US-PFIZER INC-2006155369

PATIENT
  Sex: Female
  Weight: 61.23 kg

DRUGS (2)
  1. CORTEF [Suspect]
     Indication: SYSTEMIC LUPUS ERYTHEMATOSUS
  2. LACTOSE [Suspect]

REACTIONS (4)
  - ABDOMINAL PAIN UPPER [None]
  - DRUG INEFFECTIVE [None]
  - FRUSTRATION [None]
  - INFLAMMATION [None]
